FAERS Safety Report 9753846 (Version 1)
Quarter: 2013Q4

REPORT INFORMATION
  Report Type: Spontaneous
  Country: US (occurrence: US)
  Receive Date: 20131213
  Receipt Date: 20131213
  Transmission Date: 20140711
  Serious: No
  Sender: FDA-Public Use
  Company Number: US-GILEAD-2010-0027660

PATIENT
  Sex: Female
  Weight: 113.4 kg

DRUGS (14)
  1. LETAIRIS [Suspect]
     Indication: PULMONARY ARTERIAL HYPERTENSION
     Route: 048
     Dates: start: 20090220
  2. CALTRATE [Concomitant]
  3. LIPITOR [Concomitant]
  4. DIGOXIN [Concomitant]
  5. NIASPAN [Concomitant]
  6. WARFARIN [Concomitant]
  7. FOLIC ACID [Concomitant]
  8. METHOTREXATE [Concomitant]
  9. PANTOPRAZOLE [Concomitant]
  10. FAMOTIDINE [Concomitant]
  11. PENTOXIFYLLINE [Concomitant]
  12. ADVAIR [Concomitant]
  13. METOCLOPRAMIDE [Concomitant]
  14. VITAMIN D [Concomitant]

REACTIONS (1)
  - Vomiting [Unknown]
